FAERS Safety Report 8418070-2 (Version None)
Quarter: 2012Q2

REPORT INFORMATION
  Report Type: 
  Country: None (occurrence: None)
  Receive Date: 20120607
  Receipt Date: 20120530
  Transmission Date: 20120825
  Serious: Yes (Hospitalization)
  Sender: FDA-Public Use
  Company Number: US-BAYER-2011-072667

PATIENT
  Age: 40 Year
  Sex: Female
  Weight: 52.154 kg

DRUGS (3)
  1. YASMIN [Suspect]
  2. MULTI-VITAMIN [Concomitant]
     Dosage: 1 TAB CHEW
     Route: 048
  3. DROSPIRENONE AND ETHINYL ESTRADIOL [Suspect]
     Indication: CONTRACEPTION
     Dosage: UNK
     Dates: start: 20090101, end: 20090801

REACTIONS (7)
  - INJURY [None]
  - DEEP VEIN THROMBOSIS [None]
  - ANHEDONIA [None]
  - FEAR [None]
  - PSYCHOLOGICAL TRAUMA [None]
  - PAIN [None]
  - ANXIETY [None]
